FAERS Safety Report 12780229 (Version 1)
Quarter: 2016Q3

REPORT INFORMATION
  Report Type: Spontaneous
  Country: US (occurrence: US)
  Receive Date: 20160926
  Receipt Date: 20160926
  Transmission Date: 20161109
  Serious: Yes (Hospitalization)
  Sender: FDA-Public Use
  Company Number: US-PFIZER INC-3158051

PATIENT
  Age: 20 Year
  Sex: Female
  Weight: 68.6 kg

DRUGS (12)
  1. CYTARABINE. [Suspect]
     Active Substance: CYTARABINE
     Dosage: 15 TO 2 MG, ON DAY 1 (AGE BASED DOSING), FREQ: CYCLICAL
     Route: 037
  2. ETOPOSIDE. [Suspect]
     Active Substance: ETOPOSIDE
     Indication: ANAPLASTIC LARGE CELL LYMPHOMA T- AND NULL-CELL TYPES
     Dosage: 100 MG/M2, OVER 2 HOURS ON DAYS 4 AND 5, FREQ: CYCLICAL
     Route: 042
  3. CYTARABINE. [Suspect]
     Active Substance: CYTARABINE
     Indication: ANAPLASTIC LARGE CELL LYMPHOMA T- AND NULL-CELL TYPES
     Dosage: 150 MG/M2, OVER 1 TO 30 MINUTES Q12 HOURS ON DAYS 4 AND 5 (TOTALOF 4 DOSES), FREQ: CYCLICAL
     Route: 042
  4. CRIZOTINIB [Suspect]
     Active Substance: CRIZOTINIB
     Indication: ANAPLASTIC LARGE CELL LYMPHOMA T- AND NULL-CELL TYPES
     Dosage: 165 MG/M2, ON DAYS 1 TO 21, FREQ: 2 DAY; INTERVAL: 1.
     Route: 048
     Dates: start: 20151020, end: 20151110
  5. IFOSFAMIDE. [Suspect]
     Active Substance: IFOSFAMIDE
     Indication: ANAPLASTIC LARGE CELL LYMPHOMA T- AND NULL-CELL TYPES
     Dosage: 800 MG/M2, OVER 60 MIN ON DAYS 1 TO 5, FREQ: CYCLICAL
     Route: 042
  6. METHOTREXATE SODIUM. [Suspect]
     Active Substance: METHOTREXATE SODIUM
     Dosage: 7.5 TO 12 MG ON DAY 1 (AGE BASED DOSING), FREQ: CYCLICAL
     Route: 037
     Dates: start: 20151020, end: 20151020
  7. CYCLOPHOSPHAMIDE. [Suspect]
     Active Substance: CYCLOPHOSPHAMIDE
     Indication: ANAPLASTIC LARGE CELL LYMPHOMA T- AND NULL-CELL TYPES
     Dosage: 200 MG/M2, OVER 15 TO 30 MINUTES ON DAYS 1 TO 5, FREQ: CYCLICAL
     Route: 042
     Dates: start: 20151020, end: 20151024
  8. METHOTREXATE SODIUM. [Suspect]
     Active Substance: METHOTREXATE SODIUM
     Indication: ANAPLASTIC LARGE CELL LYMPHOMA T- AND NULL-CELL TYPES
     Dosage: 3000 MG/M2, OVER 3 HOURS ON DAY 1, FREQ: CYCLICAL
     Route: 042
     Dates: start: 20151020, end: 20151020
  9. DOXORUBICIN HYDROCHLORIDE. [Suspect]
     Active Substance: DOXORUBICIN HYDROCHLORIDE
     Indication: ANAPLASTIC LARGE CELL LYMPHOMA T- AND NULL-CELL TYPES
     Dosage: 25 MG/M2, OVER 1 TO 15 MIN ON DAYS 4 AND 5, FREQ: CYCLICAL
     Route: 042
     Dates: start: 20151023, end: 20151024
  10. DEXAMETHASONE. [Suspect]
     Active Substance: DEXAMETHASONE
     Dosage: UNK
  11. CALCIUM FOLINATE [Suspect]
     Active Substance: LEUCOVORIN CALCIUM
     Indication: ANAPLASTIC LARGE CELL LYMPHOMA T- AND NULL-CELL TYPES
     Dosage: UNK
  12. LUPRON [Suspect]
     Active Substance: LEUPROLIDE ACETATE
     Indication: ANAPLASTIC LARGE CELL LYMPHOMA T- AND NULL-CELL TYPES
     Dosage: UNK

REACTIONS (1)
  - Embolism [Unknown]

NARRATIVE: CASE EVENT DATE: 20151110
